FAERS Safety Report 7287646-0 (Version None)
Quarter: 2011Q1

REPORT INFORMATION
  Report Type: 
  Country: None (occurrence: None)
  Receive Date: 20110211
  Receipt Date: 20110203
  Transmission Date: 20110831
  Serious: Yes (Other)
  Sender: FDA-Public Use
  Company Number: US-CEPHALON-2011000345

PATIENT
  Age: 32 Year
  Sex: Male

DRUGS (1)
  1. PROVIGIL [Suspect]
     Indication: HYPERSOMNIA
     Route: 048
     Dates: start: 20090113, end: 20090227

REACTIONS (1)
  - STEVENS-JOHNSON SYNDROME [None]
